FAERS Safety Report 14670209 (Version 2)
Quarter: 2018Q2

REPORT INFORMATION
  Report Type: Report from Study
  Country: JP (occurrence: JP)
  Receive Date: 20180322
  Receipt Date: 20180402
  Transmission Date: 20180711
  Serious: Yes (Hospitalization)
  Sender: FDA-Public Use
  Company Number: JP-CELLTRION INC.-2018JP018583

PATIENT

DRUGS (5)
  1. INFLIXIMAB BS FOR I.V. INFUSION100 MG [NK] [Suspect]
     Active Substance: INFLIXIMAB
     Dosage: 5 MG/BODY/DAY
     Route: 042
     Dates: start: 20161121, end: 20161121
  2. INFLIXIMAB BS FOR I.V. INFUSION100 MG [NK] [Suspect]
     Active Substance: INFLIXIMAB
     Indication: COLITIS ULCERATIVE
     Dosage: 5 MG/BODY/DAY
     Route: 042
     Dates: start: 20161108, end: 20161108
  3. INFLIXIMAB BS FOR I.V. INFUSION100 MG [NK] [Suspect]
     Active Substance: INFLIXIMAB
     Dosage: 5 MG/BODY/DAY
     Route: 042
     Dates: start: 20161220, end: 20161220
  4. ASACOL [Concomitant]
     Active Substance: MESALAMINE
     Dosage: 2400 MG/DAY
  5. PENTASA [Concomitant]
     Active Substance: MESALAMINE
     Dosage: 1 G/DAY
     Route: 065

REACTIONS (5)
  - Dyspnoea [Recovered/Resolved]
  - Inappropriate schedule of drug administration [Unknown]
  - Oxygen saturation decreased [Recovered/Resolved]
  - Headache [Unknown]
  - Pyrexia [Unknown]

NARRATIVE: CASE EVENT DATE: 20161220
